FAERS Safety Report 9087245 (Version 2)
Quarter: 2013Q1

REPORT INFORMATION
  Report Type: Spontaneous
  Country: US (occurrence: US)
  Receive Date: 20130131
  Receipt Date: 20130301
  Transmission Date: 20140127
  Serious: Yes (Other)
  Sender: FDA-Public Use
  Company Number: US-PFIZER INC-2013035211

PATIENT
  Age: 52 Year
  Sex: Male

DRUGS (3)
  1. NEURONTIN [Suspect]
     Dosage: 300 MG, 2X/DAY
  2. CITALOPRAM [Suspect]
     Dosage: 10 MG, UNK (DLY)
  3. PRAVASTATIN SODIUM [Suspect]
     Dosage: 20 MG, UNK (DLY)

REACTIONS (3)
  - Myocardial infarction [Unknown]
  - Accident [Unknown]
  - Gait disturbance [Unknown]
